FAERS Safety Report 24259218 (Version 1)
Quarter: 2024Q3

REPORT INFORMATION
  Report Type: Spontaneous
  Country: US (occurrence: None)
  Receive Date: 20240828
  Receipt Date: 20240828
  Transmission Date: 20241016
  Serious: Yes (Other)
  Sender: Public
  Company Number: None

PATIENT
  Age: 66 Year
  Sex: Male

DRUGS (2)
  1. DEFERIPRONE [Suspect]
     Active Substance: DEFERIPRONE
  2. ESOMEPRAZOLE [Concomitant]
     Dosage: FREQUENCY : TWICE A DAY;?

REACTIONS (4)
  - Cough [None]
  - Balance disorder [None]
  - Cough [None]
  - Headache [None]
